FAERS Safety Report 7600217-9 (Version None)
Quarter: 2011Q3

REPORT INFORMATION
  Report Type: 
  Country: None (occurrence: None)
  Receive Date: 20110711
  Receipt Date: 20110701
  Transmission Date: 20111222
  Serious: Yes (Other)
  Sender: FDA-Public Use
  Company Number: US-BRISTOL-MYERS SQUIBB COMPANY-15870637

PATIENT
  Sex: Female

DRUGS (5)
  1. LASIX [Concomitant]
  2. COREG [Concomitant]
     Dosage: COREG CR
  3. BONIVA [Concomitant]
  4. COUMADIN [Suspect]
     Indication: HEART VALVE REPLACEMENT
  5. LENOXIN [Concomitant]

REACTIONS (8)
  - KELOID SCAR [None]
  - PERICARDITIS [None]
  - DEPRESSION [None]
  - ALOPECIA [None]
  - DIZZINESS [None]
  - ASPARTATE AMINOTRANSFERASE INCREASED [None]
  - LIVER DISORDER [None]
  - RASH [None]
